FAERS Safety Report 9084961 (Version 1)
Quarter: 2013Q1

REPORT INFORMATION
  Report Type: Report from Study
  Country: CA (occurrence: CA)
  Receive Date: 20130131
  Receipt Date: 20130131
  Transmission Date: 20140127
  Serious: Yes (Life-Threatening, Hospitalization)
  Sender: FDA-Public Use
  Company Number: CA-PFIZER INC-2013038547

PATIENT
  Age: 63 Year
  Sex: Female
  Weight: 94.5 kg

DRUGS (30)
  1. DOXORUBICIN HCL [Suspect]
     Indication: DIFFUSE LARGE B-CELL LYMPHOMA
     Dosage: 97.5 MG, EVERY 3 WEEKS
     Route: 042
     Dates: start: 20120919
  2. OBINOTUZUMAB [Suspect]
     Indication: DIFFUSE LARGE B-CELL LYMPHOMA
     Dosage: 4 MG/ML (250 ML) 1X/3 WEEKS
     Route: 042
     Dates: start: 20120918
  3. PREDNISOLONE [Suspect]
     Indication: DIFFUSE LARGE B-CELL LYMPHOMA
     Dosage: 100 MG, EVERY 3 WEEKS
     Dates: start: 20120918
  4. CYCLOPHOSPHAMIDE [Suspect]
     Indication: DIFFUSE LARGE B-CELL LYMPHOMA
     Dosage: 1462.5 MG, EVERY 3 WEEKS
     Route: 042
     Dates: start: 20120919
  5. VINCRISTINE SULFATE [Suspect]
     Indication: DIFFUSE LARGE B-CELL LYMPHOMA
     Dosage: 2 MG, EVERY 3 WEEKS
     Route: 042
     Dates: start: 20120919
  6. VAGIFEM [Concomitant]
     Dosage: UNK
     Dates: start: 2010
  7. VESICARE [Concomitant]
     Indication: HYPERTONIC BLADDER
     Dosage: UNK
     Dates: start: 2010
  8. ELAVIL [Concomitant]
     Indication: SLEEP DISORDER
     Dosage: UNK
  9. CRESTOR [Concomitant]
     Indication: HYPERLIPIDAEMIA
     Dosage: UNK
  10. BACLOFEN [Concomitant]
     Indication: MUSCLE SPASTICITY
     Dosage: UNK
  11. CELEBREX [Concomitant]
     Indication: OSTEOARTHRITIS
     Dosage: UNK
  12. ACTONEL [Concomitant]
     Indication: OSTEOPOROSIS
     Dosage: UNK
  13. DALTEPARIN [Concomitant]
     Indication: PROPHYLAXIS
     Dosage: UNK
  14. GABAPENTIN [Concomitant]
     Indication: NEURALGIA
     Dosage: UNK
  15. SENOKOT [Concomitant]
     Indication: CONSTIPATION
     Dosage: UNK
     Dates: start: 20120915
  16. DILAUDID [Concomitant]
     Indication: PAIN
     Dosage: UNK
     Dates: start: 20120917
  17. DILAUDID [Concomitant]
     Dosage: UNK
     Dates: start: 20120907
  18. DIOVOL [Concomitant]
     Indication: DYSPEPSIA
     Dosage: UNK
  19. SENNA [Concomitant]
     Indication: CONSTIPATION
     Dosage: UNK
  20. PEG 3350 AND ELECTROLYTES FOR ORAL SOLUTION [Concomitant]
     Indication: CONSTIPATION
     Dosage: UNK
     Dates: start: 20120916
  21. BENADRYL [Concomitant]
     Indication: PREMEDICATION
     Dosage: UNK
     Dates: start: 20120918
  22. TYLENOL [Concomitant]
     Indication: PREMEDICATION
     Dosage: UNK
     Dates: start: 20120918
  23. ALUMINIUM HYDROXIDE-MAGNESIUM CARBONATE GEL [Concomitant]
     Indication: DYSPEPSIA
     Dosage: UNK
     Dates: start: 20120919
  24. POLYSACCHARIDE-IRON COMPLEX [Concomitant]
     Dosage: UNK
     Dates: start: 20120903
  25. ACYCLOVIR [Concomitant]
     Indication: ORAL HERPES
     Dosage: UNK
     Dates: start: 20120908
  26. ACYCLOVIR [Concomitant]
     Indication: HERPES SIMPLEX
     Dosage: UNK
     Dates: start: 20121120
  27. WARFARIN [Concomitant]
     Indication: DEEP VEIN THROMBOSIS
     Dosage: UNK
     Dates: start: 20121007
  28. WARFARIN [Concomitant]
     Dosage: UNK
     Dates: start: 20120930
  29. LACTULOSE [Concomitant]
     Indication: CONSTIPATION
     Dosage: UNK
     Dates: start: 2012
  30. ONDANSETRON [Concomitant]
     Dosage: UNK
     Dates: start: 20120918

REACTIONS (1)
  - Pneumonia [Recovered/Resolved]
